FAERS Safety Report 12975187 (Version 1)
Quarter: 2016Q4

REPORT INFORMATION
  Report Type: Report from Study
  Country: US (occurrence: US)
  Receive Date: 20161125
  Receipt Date: 20161125
  Transmission Date: 20170207
  Serious: Yes (Other)
  Sender: FDA-Public Use
  Company Number: US-ROCHE-1857928

PATIENT
  Sex: Female

DRUGS (4)
  1. ETHINYL ESTRADIOL [Suspect]
     Active Substance: ETHINYL ESTRADIOL
     Indication: CONTRACEPTION
     Route: 065
  2. NORETHINDRONE ACETATE. [Suspect]
     Active Substance: NORETHINDRONE ACETATE
     Indication: CONTRACEPTION
     Route: 065
  3. ORLISTAT [Suspect]
     Active Substance: ORLISTAT
     Indication: WEIGHT DECREASED
     Dosage: BREAKFAST, LUNCH, AND DINNER DURING THE STUDY.
     Route: 048
  4. SIBUTRAMINE [Suspect]
     Active Substance: SIBUTRAMINE
     Indication: WEIGHT DECREASED
     Dosage: TITRATED UP TO A MAXIMUM DOSE OF 15 MG PER DAY IF TOLERATED
     Route: 065

REACTIONS (13)
  - Headache [Unknown]
  - Nausea [Unknown]
  - Steatorrhoea [Unknown]
  - Constipation [Unknown]
  - Uterine haemorrhage [Unknown]
  - Vomiting [Unknown]
  - Diarrhoea [Unknown]
  - Dysmenorrhoea [Unknown]
  - Breast pain [Unknown]
  - Flatulence [Unknown]
  - Abdominal distension [Unknown]
  - Upper respiratory tract infection [Unknown]
  - Abdominal pain [Unknown]
